FAERS Safety Report 18082627 (Version 1)
Quarter: 2020Q3

REPORT INFORMATION
  Report Type: Other
  Country: US (occurrence: US)
  Receive Date: 20200728
  Receipt Date: 20200728
  Transmission Date: 20201103
  Serious: No
  Sender: FDA-Public Use
  Company Number: US-ROCHE-2647508

PATIENT
  Sex: Female
  Weight: 74.91 kg

DRUGS (1)
  1. OCREVUS [Suspect]
     Active Substance: OCRELIZUMAB
     Indication: RELAPSING MULTIPLE SCLEROSIS
     Dosage: ONE 300 MG INFUSION ;ONGOING: YES
     Route: 042
     Dates: start: 20200717

REACTIONS (1)
  - Oral herpes [Unknown]
